FAERS Safety Report 7970443-8 (Version None)
Quarter: 2011Q4

REPORT INFORMATION
  Report Type: 
  Country: None (occurrence: None)
  Receive Date: 20111212
  Receipt Date: 20111130
  Transmission Date: 20120403
  Serious: Yes (Hospitalization)
  Sender: FDA-Public Use
  Company Number: PHHY2011AR105646

PATIENT
  Sex: Male

DRUGS (1)
  1. RASILEZ D [Suspect]

REACTIONS (1)
  - CARDIAC FAILURE [None]
